FAERS Safety Report 7082674 (Version 2)
Quarter: 2015Q1

REPORT INFORMATION
  Report Type: Spontaneous
  Country: GR (occurrence: None)
  Receive Date: 20090807
  Receipt Date: 20150226
  Transmission Date: 20150721
  Serious: Yes (Hospitalization)
  Sender: FDA-Public Use
  Company Number: 2009002159

PATIENT
  Age: 73 Year
  Sex: Male

DRUGS (13)
  1. ZOFRAN [Concomitant]
     Active Substance: ONDANSETRON HYDROCHLORIDE
  2. TAXOTERE [Suspect]
     Active Substance: DOCETAXEL
     Indication: LUNG NEOPLASM MALIGNANT
     Dosage: 150 MG; INTRAVENOUS
     Route: 042
  3. OXXALGAN (TRAMADOL HYDROCHLORIDE) [Concomitant]
  4. MEDROL [Concomitant]
     Active Substance: METHYLPREDNISOLONE
  5. DEXATON (DEXAMETHASONE SODIUM PHOSPHATE) [Concomitant]
  6. TARCEVA [Suspect]
     Active Substance: ERLOTINIB HYDROCHLORIDE
     Indication: LUNG NEOPLASM MALIGNANT
     Dosage: 150 MG, QD, ORAL
     Route: 048
     Dates: start: 20090625, end: 20090630
  7. DEPON (PARACETAMOL) [Concomitant]
  8. MOVATEC (MELOXICAM) [Concomitant]
     Active Substance: MELOXICAM
  9. FENISTIL (DIMETINDENE MALEATE) [Concomitant]
  10. ZURCAZOL (PANTOPRAZOLE SODIUM SESQUIHYDRATE) [Concomitant]
  11. ZODATRON (ONDANSETRON HYDROCHLORIDE) [Concomitant]
  12. GABAPENTIN (GABAPENTIN) [Concomitant]
     Active Substance: GABAPENTIN
  13. NOLTEC (ILAPRAZOLE) [Concomitant]

REACTIONS (2)
  - White blood cell count decreased [None]
  - Febrile neutropenia [None]

NARRATIVE: CASE EVENT DATE: 20090630
